FAERS Safety Report 4446747-2 (Version None)
Quarter: 2004Q3

REPORT INFORMATION
  Report Type: 
  Country: None (occurrence: None)
  Receive Date: 20040910
  Receipt Date: 20040830
  Transmission Date: 20050211
  Serious: Yes (Hospitalization)
  Sender: FDA-Public Use
  Company Number: 2004056017

PATIENT
  Age: 40 Year
  Sex: Male

DRUGS (6)
  1. VFEND [Suspect]
     Indication: BRONCHOPULMONARY ASPERGILLOSIS
     Dosage: 400 MG
     Dates: start: 20040414, end: 20040703
  2. TRAMADOL HCL [Suspect]
     Indication: ILL-DEFINED DISORDER
     Dosage: 300 MG (1 IN 1 D), ORAL
     Route: 048
     Dates: start: 20040627, end: 20040703
  3. TIENAM (CILASTATIN, IMIPENEM) [Suspect]
     Indication: ILL-DEFINED DISORDER
     Dosage: 3 GRAM (1 GRAM, 1 IN 8 HR)
     Dates: start: 20040612
  4. ACETAMINOPHEN [Concomitant]
  5. HEPARIN [Concomitant]
  6. OMEPRAZOLE [Concomitant]

REACTIONS (2)
  - CYTOLYTIC HEPATITIS [None]
  - STATUS EPILEPTICUS [None]
